FAERS Safety Report 5283064-5 (Version None)
Quarter: 2007Q2

REPORT INFORMATION
  Report Type: 
  Country: None (occurrence: None)
  Receive Date: 20070327
  Receipt Date: 20070315
  Transmission Date: 20071010
  Serious: Yes (Hospitalization)
  Sender: FDA-Public Use
  Company Number: 2007-00732

PATIENT
  Age: 28 Year
  Sex: Female
  Weight: 50 kg

DRUGS (8)
  1. VELCADE [Suspect]
     Indication: T-CELL LYMPHOMA
     Dosage: 1.50 MG/M2, INTRAVENOUS
     Route: 042
     Dates: start: 20070212, end: 20070302
  2. PREDNISONE TAB [Suspect]
     Indication: T-CELL LYMPHOMA
     Dosage: 60.00MG/M2, ORAL
     Route: 048
     Dates: start: 20070212, end: 20070302
  3. DOXORUBICIN HCL [Suspect]
     Indication: T-CELL LYMPHOMA
     Dosage: 75.00 MG/M2, INTRAVENOUS
     Route: 042
     Dates: start: 20070212, end: 20070226
  4. CYCLOPHOSPHAMIDE [Suspect]
     Indication: T-CELL LYMPHOMA
     Dosage: 1200.00 MG/M2, INTRAVENOUS
     Route: 042
     Dates: start: 20070212, end: 20070226
  5. ELDISINE(VINDESINE) INJECTION, 2 TO 4MG/M2 [Suspect]
     Indication: T-CELL LYMPHOMA
     Dosage: 2.00 MG/M2, INTRAVENOUS
     Route: 042
     Dates: start: 20070212, end: 20070302
  6. BLEOMYCIN [Suspect]
     Indication: T-CELL LYMPHOMA
     Dosage: 10.00 MG, INTRAVENOUS
     Route: 042
     Dates: start: 20070212, end: 20070302
  7. METHOTREXATE [Suspect]
     Indication: T-CELL LYMPHOMA
     Dosage: 15.00 MG, INTRATHECAL
     Route: 037
     Dates: start: 20070216, end: 20070216
  8. GRANOCYTE 13-34(LENOGRASTIM) [Suspect]
     Indication: T-CELL LYMPHOMA
     Dosage: 15.00 UG/M2, SUBCUTANEOUS
     Route: 058
     Dates: start: 20070217, end: 20070304

REACTIONS (9)
  - DRUG INEFFECTIVE [None]
  - FEBRILE NEUTROPENIA [None]
  - HERPES SIMPLEX [None]
  - LYMPH NODE PAIN [None]
  - MUCOSAL INFLAMMATION [None]
  - ORAL HERPES [None]
  - PALATAL DISORDER [None]
  - PHARYNGITIS [None]
  - ULCER [None]
